FAERS Safety Report 7335964-X (Version None)
Quarter: 2011Q1

REPORT INFORMATION
  Report Type: 
  Country: None (occurrence: None)
  Receive Date: 20110307
  Receipt Date: 20110302
  Transmission Date: 20110831
  Serious: Yes (Other)
  Sender: FDA-Public Use
  Company Number: IT-ABBOTT-11P-083-0708583-00

PATIENT
  Sex: Female

DRUGS (1)
  1. SEVOFLURANE [Suspect]
     Indication: ANAESTHESIA
     Dosage: DOSE: 8 % / MIN
     Dates: start: 20110214, end: 20110214

REACTIONS (5)
  - RASH [None]
  - AIRWAY COMPLICATION OF ANAESTHESIA [None]
  - EYELID OEDEMA [None]
  - LIP OEDEMA [None]
  - LARYNGOSPASM [None]
